FAERS Safety Report 24387030 (Version 1)
Quarter: 2024Q4

REPORT INFORMATION
  Report Type: Spontaneous
  Country: US (occurrence: US)
  Receive Date: 20241002
  Receipt Date: 20241002
  Transmission Date: 20250114
  Serious: Yes (Hospitalization, Other)
  Sender: CHEPLAPHARM
  Company Number: US-CHEPLA-2024012340

PATIENT
  Sex: Male

DRUGS (5)
  1. HYDROXYUREA [Suspect]
     Active Substance: HYDROXYUREA
     Indication: Sickle cell disease
  2. OXBRYTA [Suspect]
     Active Substance: VOXELOTOR
     Indication: Sickle cell disease
     Dosage: 300 MG FOR 14 DAYS AND THEN INCREASE OF 400 MG, IF TOLERATED?DAILY DOSE: 300 MILLIGRAM
     Dates: start: 20230817, end: 20231120
  3. OXBRYTA [Suspect]
     Active Substance: VOXELOTOR
     Indication: Sickle cell disease
     Dosage: RESTART VOXELATOR
     Dates: start: 20231012
  4. OXBRYTA [Suspect]
     Active Substance: VOXELOTOR
     Indication: Sickle cell disease
     Dosage: 300 MG?DAILY DOSE: 1 DOSAGE FORM
     Dates: start: 20231207
  5. OXBRYTA [Suspect]
     Active Substance: VOXELOTOR
     Indication: Sickle cell disease
     Dosage: 3 TIMES WEEKLY
     Dates: start: 202408

REACTIONS (5)
  - Sickle cell anaemia with crisis [Recovered/Resolved with Sequelae]
  - Treatment noncompliance [Recovered/Resolved]
  - Intentional product misuse [Recovered/Resolved with Sequelae]
  - Product use complaint [Unknown]
  - Weight increased [Unknown]

NARRATIVE: CASE EVENT DATE: 20240201
